FAERS Safety Report 11124894 (Version 1)
Quarter: 2015Q2

REPORT INFORMATION
  Report Type: Report from Study
  Country: CA (occurrence: CA)
  Receive Date: 20150520
  Receipt Date: 20150520
  Transmission Date: 20150821
  Serious: Yes (Hospitalization)
  Sender: FDA-Public Use
  Company Number: CA-EMD SERONO-7004529

PATIENT
  Age: 45 Year
  Sex: Female

DRUGS (7)
  1. PROGESTERONE. [Concomitant]
     Active Substance: PROGESTERONE
     Indication: PRODUCT USED FOR UNKNOWN INDICATION
  2. T3 [Concomitant]
     Active Substance: LIOTHYRONINE SODIUM
     Indication: HORMONE THERAPY
  3. SAIZEN [Suspect]
     Active Substance: SOMATROPIN
     Indication: GROWTH HORMONE DEFICIENCY
     Route: 058
     Dates: start: 200906
  4. ESTROGEN [Concomitant]
     Active Substance: ESTRONE\SUS SCROFA OVARY
     Indication: PRODUCT USED FOR UNKNOWN INDICATION
  5. T4 [Concomitant]
     Active Substance: LEVOTHYROXINE
     Indication: HORMONE THERAPY
  6. CORTISOL                           /00028601/ [Concomitant]
     Indication: PRODUCT USED FOR UNKNOWN INDICATION
  7. DHEA [Concomitant]
     Active Substance: DEHYDROEPIANDROSTERONE-3-SULFATE SODIUM
     Indication: PRODUCT USED FOR UNKNOWN INDICATION

REACTIONS (10)
  - Pituitary-dependent Cushing^s syndrome [Unknown]
  - Migraine [Recovered/Resolved]
  - Pituitary tumour benign [Recovering/Resolving]
  - Inflammation [Recovering/Resolving]
  - Gait disturbance [Recovering/Resolving]
  - Fatigue [Unknown]
  - Malaise [Unknown]
  - Pain [Unknown]
  - Eczema [Recovering/Resolving]
  - Asthenia [Unknown]

NARRATIVE: CASE EVENT DATE: 201001
